FAERS Safety Report 18526759 (Version 2)
Quarter: 2020Q4

REPORT INFORMATION
  Report Type: Report from Study
  Country: IL (occurrence: IL)
  Receive Date: 20201120
  Receipt Date: 20201204
  Transmission Date: 20210114
  Serious: Yes (Other)
  Sender: FDA-Public Use
  Company Number: IL-TAKEDA-2020TUS011421

PATIENT
  Sex: Female

DRUGS (8)
  1. VEDOLIZUMAB [Suspect]
     Active Substance: VEDOLIZUMAB
     Indication: CROHN^S DISEASE
  2. CIPRALEX [Suspect]
     Active Substance: ESCITALOPRAM OXALATE
     Indication: ANXIETY
     Dosage: UNK
     Route: 065
  3. TENOFOVIR [Concomitant]
     Active Substance: TENOFOVIR
     Dosage: 300 MILLIGRAM, QD
  4. FOLIC ACID. [Concomitant]
     Active Substance: FOLIC ACID
     Dosage: UNK
  5. VEDOLIZUMAB [Suspect]
     Active Substance: VEDOLIZUMAB
     Indication: COLITIS ULCERATIVE
     Dosage: 300 MILLIGRAM, Q4WEEKS
     Route: 042
     Dates: start: 20160901
  6. RAFASSAL                           /00000301/ [Concomitant]
     Active Substance: AMINOSALICYLIC ACID
     Dosage: 2 GRAM, QD
  7. OMEPRAZOLE. [Concomitant]
     Active Substance: OMEPRAZOLE
     Dosage: 20 MILLIGRAM, BID
  8. AKTIFERRIN                         /00631201/ [Concomitant]
     Active Substance: FERROUS SULFATE\SERINE
     Dosage: UNK

REACTIONS (6)
  - Irritable bowel syndrome [Not Recovered/Not Resolved]
  - Anxiety [Not Recovered/Not Resolved]
  - Therapeutic reaction time decreased [Unknown]
  - Weight decreased [Unknown]
  - Weight increased [Not Recovered/Not Resolved]
  - Fibromyalgia [Not Recovered/Not Resolved]
